FAERS Safety Report 18532630 (Version 1)
Quarter: 2020Q4

REPORT INFORMATION
  Report Type: Spontaneous
  Country: PL (occurrence: PL)
  Receive Date: 20201123
  Receipt Date: 20201123
  Transmission Date: 20210114
  Serious: Yes (Hospitalization, Other)
  Sender: FDA-Public Use
  Company Number: PL-ACCORD-208625

PATIENT
  Age: 79 Year
  Sex: Male

DRUGS (10)
  1. RAMIPRIL. [Concomitant]
     Active Substance: RAMIPRIL
  2. EPLERENONE. [Concomitant]
     Active Substance: EPLERENONE
  3. FUROSEMIDE. [Suspect]
     Active Substance: FUROSEMIDE
     Route: 042
  4. FUROSEMIDE. [Suspect]
     Active Substance: FUROSEMIDE
     Indication: PULMONARY OEDEMA
     Dosage: 2 X 40 MG
  5. GLICLAZIDE [Concomitant]
     Active Substance: GLICLAZIDE
  6. ATORVASTATIN [Concomitant]
     Active Substance: ATORVASTATIN
  7. BISOPROLOL [Concomitant]
     Active Substance: BISOPROLOL
  8. ACETYLSALICYLIC ACID [Concomitant]
     Active Substance: ASPIRIN
  9. EPLERENONE. [Concomitant]
     Active Substance: EPLERENONE
  10. METFORMIN [Concomitant]
     Active Substance: METFORMIN HYDROCHLORIDE
     Dosage: 3 X 850 MG

REACTIONS (7)
  - Hypotension [Recovering/Resolving]
  - Hypovolaemia [Recovering/Resolving]
  - Ischaemic stroke [Unknown]
  - Oedema [Unknown]
  - Acute kidney injury [Recovering/Resolving]
  - Overdose [Unknown]
  - Loss of consciousness [Unknown]
